FAERS Safety Report 6657043-7 (Version None)
Quarter: 2010Q1

REPORT INFORMATION
  Report Type: 
  Country: None (occurrence: None)
  Receive Date: 20100330
  Receipt Date: 20100318
  Transmission Date: 20100710
  Serious: Yes (Other)
  Sender: FDA-Public Use
  Company Number: AU-WYE-G05784810

PATIENT
  Sex: Female

DRUGS (3)
  1. PRISTIQ [Suspect]
     Dosage: 50MG
     Dates: start: 20091101
  2. PRISTIQ [Suspect]
     Dosage: 200MG
     Dates: start: 20100101
  3. XANAX [Concomitant]

REACTIONS (8)
  - BLOOD URINE PRESENT [None]
  - HAEMORRHAGE [None]
  - OEDEMA PERIPHERAL [None]
  - RASH [None]
  - RASH ERYTHEMATOUS [None]
  - RASH PAPULAR [None]
  - SKIN LESION [None]
  - STEVENS-JOHNSON SYNDROME [None]
